FAERS Safety Report 8888200 (Version 2)
Quarter: 2014Q4

REPORT INFORMATION
  Report Type: Spontaneous
  Country: FR (occurrence: FR)
  Receive Date: 20121106
  Receipt Date: 20141229
  Transmission Date: 20150529
  Serious: Yes (Hospitalization)
  Sender: FDA-Public Use
  Company Number: FR-ACTELION-A-CH2009-28242

PATIENT
  Age: 71 Year
  Sex: Female
  Weight: 63 kg

DRUGS (13)
  1. TRACLEER [Suspect]
     Active Substance: BOSENTAN\BOSENTAN MONOHYDRATE
     Dosage: 62.5 MG, BID
     Route: 048
     Dates: start: 20090801, end: 200909
  2. RIVOTRIL [Concomitant]
     Active Substance: CLONAZEPAM
  3. TARDYFERON [Concomitant]
     Active Substance: FERROUS SULFATE\FOLIC ACID
  4. ILOPROST [Concomitant]
     Active Substance: ILOPROST
     Route: 042
  5. INEXIUM [Concomitant]
     Active Substance: ESOMEPRAZOLE
  6. TRACLEER [Suspect]
     Active Substance: BOSENTAN\BOSENTAN MONOHYDRATE
     Indication: SKIN ULCER
     Dosage: 125 MG, BID
     Route: 048
     Dates: start: 200909, end: 20090922
  7. MOTILIUM [Concomitant]
     Active Substance: DOMPERIDONE
  8. PREVISCAN [Concomitant]
     Active Substance: FLUINDIONE
  9. CORTANCYL [Concomitant]
     Active Substance: PREDNISONE
  10. OROCAL D(3) [Concomitant]
     Active Substance: CALCIUM CARBONATE\CHOLECALCIFEROL
  11. STILNOX [Concomitant]
     Active Substance: ZOLPIDEM TARTRATE
  12. LOXEN [Concomitant]
     Active Substance: NICARDIPINE HYDROCHLORIDE
  13. ATARAX [Concomitant]
     Active Substance: HYDROXYZINE\HYDROXYZINE HYDROCHLORIDE

REACTIONS (16)
  - Systemic inflammatory response syndrome [Recovered/Resolved]
  - C-reactive protein increased [Recovered/Resolved]
  - Eosinophilia [Recovered/Resolved]
  - Aspartate aminotransferase increased [Recovered/Resolved]
  - Drug effect incomplete [Unknown]
  - Rash [Recovered/Resolved]
  - Gamma-glutamyltransferase increased [Recovered/Resolved]
  - Drug reaction with eosinophilia and systemic symptoms [Recovered/Resolved]
  - Asthenia [Recovered/Resolved]
  - Face oedema [Recovered/Resolved]
  - Hepatitis [Recovered/Resolved]
  - Rash maculo-papular [Recovered/Resolved]
  - Pyrexia [Recovered/Resolved]
  - Liver function test abnormal [Recovered/Resolved]
  - Headache [Recovered/Resolved]
  - Alanine aminotransferase increased [Recovered/Resolved]

NARRATIVE: CASE EVENT DATE: 20090916
